FAERS Safety Report 7097756-9 (Version None)
Quarter: 2010Q4

REPORT INFORMATION
  Report Type: 
  Country: None (occurrence: None)
  Receive Date: 20101103
  Receipt Date: 20101021
  Transmission Date: 20110411
  Serious: Yes (Other)
  Sender: FDA-Public Use
  Company Number: ALA_00492_2010

PATIENT
  Sex: Female
  Weight: 61.6892 kg

DRUGS (2)
  1. REGLAN [Suspect]
     Indication: IMPAIRED GASTRIC EMPTYING
     Dosage: DF ORAL
     Route: 048
     Dates: start: 20100420, end: 20100426
  2. METOCLOPRAMIDE [Suspect]
     Indication: IMPAIRED GASTRIC EMPTYING
     Dosage: DF ORAL
     Route: 048
     Dates: start: 20100409, end: 20100419

REACTIONS (20)
  - ASTHENIA [None]
  - BALANCE DISORDER [None]
  - COELIAC DISEASE [None]
  - CONFUSIONAL STATE [None]
  - CRYING [None]
  - DRY MOUTH [None]
  - DRY THROAT [None]
  - DYSGEUSIA [None]
  - FATIGUE [None]
  - HEADACHE [None]
  - HEART RATE INCREASED [None]
  - HYPERHIDROSIS [None]
  - MEMORY IMPAIRMENT [None]
  - NERVOUS SYSTEM DISORDER [None]
  - NERVOUSNESS [None]
  - PHOTOPHOBIA [None]
  - TARDIVE DYSKINESIA [None]
  - THINKING ABNORMAL [None]
  - TREMOR [None]
  - VISION BLURRED [None]
